FAERS Safety Report 21308700 (Version 1)
Quarter: 2022Q3

REPORT INFORMATION
  Report Type: Spontaneous
  Country: US (occurrence: None)
  Receive Date: 20220908
  Receipt Date: 20220908
  Transmission Date: 20221027
  Serious: No
  Sender: FDA-Public Use
  Company Number: None

PATIENT
  Age: 72 Year
  Sex: Female
  Weight: 46.18 kg

DRUGS (10)
  1. VERZENIO [Suspect]
     Active Substance: ABEMACICLIB
     Indication: Breast cancer female
     Dosage: FREQUENCY : TWICE A DAY;?
     Route: 048
  2. BARACLUDE [Concomitant]
  3. CALCIUM CARBONATE [Concomitant]
  4. FEMARA [Concomitant]
     Active Substance: LETROZOLE
  5. LETROZOLE [Concomitant]
  6. LOPERAMIDE [Concomitant]
  7. REMERON [Concomitant]
  8. SYNTHROID [Concomitant]
  9. TEMOVATE [Concomitant]
  10. VITAMIN D3 [Concomitant]
     Active Substance: CHOLECALCIFEROL

REACTIONS (1)
  - Neoplasm progression [None]
